FAERS Safety Report 8888579 (Version 2)
Quarter: 2012Q4

REPORT INFORMATION
  Report Type: 
  Country: BR (occurrence: BR)
  Receive Date: 20121106
  Receipt Date: 20121123
  Transmission Date: 20130627
  Serious: Yes (Other)
  Sender: FDA-Public Use
  Company Number: PHHY2012BR093754

PATIENT
  Sex: Male
  Weight: 123 kg

DRUGS (2)
  1. RITALINA [Suspect]
     Indication: EPILEPSY
     Dosage: half tablet a day
     Route: 048
     Dates: start: 20101003
  2. RITALINA [Suspect]
     Dosage: 10 mg, daily
     Route: 048
     Dates: end: 20101207

REACTIONS (9)
  - Migraine [Not Recovered/Not Resolved]
  - Pain [Unknown]
  - Headache [Not Recovered/Not Resolved]
  - Learning disorder [Unknown]
  - Somnambulism [Unknown]
  - Hypersomnia [Unknown]
  - Crying [Unknown]
  - Agitation [Unknown]
  - Drug ineffective [Unknown]
